FAERS Safety Report 5747545-X (Version None)
Quarter: 2008Q2

REPORT INFORMATION
  Report Type: 
  Country: None (occurrence: None)
  Receive Date: 20080523
  Receipt Date: 20080512
  Transmission Date: 20081010
  Serious: Yes (Hospitalization, Other)
  Sender: FDA-Public Use
  Company Number: US-ELI_LILLY_AND_COMPANY-US200805002197

PATIENT
  Sex: Female

DRUGS (7)
  1. FORTEO [Suspect]
  2. NEURONTIN [Concomitant]
  3. PREDNISONE TAB [Concomitant]
  4. NEXIUM [Concomitant]
  5. TOPROL-XL [Concomitant]
  6. NORVASC [Concomitant]
  7. CHLOROQUINE PHOSPHATE [Concomitant]

REACTIONS (1)
  - LUNG NEOPLASM MALIGNANT [None]
